FAERS Safety Report 4100259 (Version 2)
Quarter: 2014Q2

REPORT INFORMATION
  Report Type: Other
  Country: JP (occurrence: JP)
  Receive Date: 20040303
  Receipt Date: 20140611
  Transmission Date: 20141212
  Serious: Yes (Other)
  Sender: FDA-Public Use
  Company Number: JP-BRISTOL-MYERS SQUIBB COMPANY-12514642

PATIENT
  Sex: Male

DRUGS (4)
  1. CARBOPLATIN [Suspect]
     Indication: TESTICULAR GERM CELL CANCER
  2. ETOPOSIDE [Suspect]
     Indication: TESTICULAR GERM CELL CANCER
  3. IFOSFAMIDE [Suspect]
     Indication: TESTICULAR GERM CELL CANCER
     Dosage: 7.5 G/M2
  4. STEM CELL TRANSPLANTATION [Concomitant]
     Indication: TESTICULAR GERM CELL CANCER

REACTIONS (2)
  - Azoospermia [Recovered/Resolved]
  - Blood follicle stimulating hormone increased [Recovered/Resolved]
